FAERS Safety Report 9368892 (Version 3)
Quarter: 2013Q4

REPORT INFORMATION
  Report Type: Spontaneous
  Country: JP (occurrence: None)
  Receive Date: 20130624
  Receipt Date: 20131001
  Transmission Date: 20140711
  Serious: Yes (Death)
  Sender: FDA-Public Use
  Company Number: ADR-2013-01040

PATIENT
  Age: 53 Year
  Sex: Male

DRUGS (1)
  1. GABALON [Suspect]
     Indication: SPINAL CORD INJURY
     Dosage: 600 MCG/DAY
     Route: 037
     Dates: start: 20091021, end: 20131011

REACTIONS (4)
  - Drowning [None]
  - Diplegia [None]
  - Accident [None]
  - Drug dose omission [None]
